FAERS Safety Report 5806421-4 (Version None)
Quarter: 2008Q3

REPORT INFORMATION
  Report Type: 
  Country: None (occurrence: None)
  Receive Date: 20080708
  Receipt Date: 20080623
  Transmission Date: 20090109
  Serious: Yes (Other)
  Sender: FDA-Public Use
  Company Number: A-NJ2008-20587

PATIENT
  Age: 78 Year
  Sex: Female
  Weight: 81.6 kg

DRUGS (16)
  1. TRACLEER [Suspect]
     Indication: PULMONARY HYPERTENSION
     Dosage: 125 MG, BID, ORAL; 62.5 MG, BID, ORAL
     Route: 048
     Dates: start: 20071109, end: 20071201
  2. TRACLEER [Suspect]
     Indication: PULMONARY HYPERTENSION
     Dosage: 125 MG, BID, ORAL; 62.5 MG, BID, ORAL
     Route: 048
     Dates: start: 20071201, end: 20080401
  3. ZETIA [Concomitant]
  4. AMARYL [Concomitant]
  5. METFORMIN HCL [Concomitant]
  6. TYLENOL ARTHRITIS (PRACETAMOL) [Concomitant]
  7. ASPIRIN [Concomitant]
  8. FERROUS SULFATE TAB [Concomitant]
  9. JANUVIA [Concomitant]
  10. ALPHAGAN (BRIMONIDINE) [Concomitant]
  11. HYDROCHLOROTHIAZIDE [Concomitant]
  12. ENALAPRIL MALEATE [Concomitant]
  13. THEOPHYLLINE [Concomitant]
  14. ADVIR (FLUTICASON PROPIONATE, SALMETEROL XINAFOATE) [Concomitant]
  15. SPIRIVA [Concomitant]
  16. OXYGEN (OXYGEN) [Concomitant]

REACTIONS (8)
  - AUTOIMMUNE HEPATITIS [None]
  - FATIGUE [None]
  - HAEMATOCRIT DECREASED [None]
  - HAEMOGLOBIN DECREASED [None]
  - INSOMNIA [None]
  - METASTASES TO LUNG [None]
  - MIXED CONNECTIVE TISSUE DISEASE [None]
  - SYSTEMIC LUPUS ERYTHEMATOSUS [None]
